FAERS Safety Report 7493310-5 (Version None)
Quarter: 2011Q2

REPORT INFORMATION
  Report Type: 
  Country: None (occurrence: None)
  Receive Date: 20110519
  Receipt Date: 20110519
  Transmission Date: 20111010
  Serious: Yes (Other)
  Sender: FDA-Public Use
  Company Number: None

PATIENT
  Age: 74 Year
  Sex: Male
  Weight: 95.3 kg

DRUGS (1)
  1. DOCETAXEL [Suspect]
     Indication: BREAST CANCER METASTATIC
     Dosage: 170.3MG X1 IV
     Route: 042
     Dates: start: 20110111

REACTIONS (5)
  - CHEST DISCOMFORT [None]
  - NAUSEA [None]
  - INFUSION RELATED REACTION [None]
  - ANXIETY [None]
  - FLUSHING [None]
